FAERS Safety Report 9349558 (Version 1)
Quarter: 2013Q2

REPORT INFORMATION
  Report Type: Spontaneous
  Country: FR (occurrence: FR)
  Receive Date: 20130614
  Receipt Date: 20130614
  Transmission Date: 20140414
  Serious: Yes (Life-Threatening, Hospitalization)
  Sender: FDA-Public Use
  Company Number: FR-GLAXOSMITHKLINE-B0897859A

PATIENT
  Age: 80 Year
  Sex: Female

DRUGS (6)
  1. ARIXTRA [Suspect]
     Indication: DEEP VEIN THROMBOSIS
     Dosage: 7.5MG PER DAY
     Route: 058
     Dates: start: 20130323, end: 20130407
  2. ASPEGIC [Suspect]
     Indication: DEEP VEIN THROMBOSIS
     Dosage: 100MG PER DAY
     Route: 048
     Dates: start: 20130323, end: 20130414
  3. KARDEGIC [Suspect]
     Indication: DEEP VEIN THROMBOSIS
     Dosage: 75MG PER DAY
     Route: 048
     Dates: start: 20130323, end: 20130414
  4. METFORMINE [Concomitant]
     Route: 065
  5. REPAGLINIDE [Concomitant]
     Route: 065
  6. PANTOPRAZOLE [Concomitant]
     Route: 065

REACTIONS (10)
  - Shock haemorrhagic [Recovered/Resolved]
  - Epistaxis [Recovered/Resolved]
  - Injection site haematoma [Recovered/Resolved]
  - Muscle haemorrhage [Recovered/Resolved]
  - Anaemia [Recovered/Resolved]
  - Local swelling [Unknown]
  - Drug interaction [Unknown]
  - Incorrect drug administration duration [Unknown]
  - Shock [Unknown]
  - Hypothermia [Unknown]
